FAERS Safety Report 9118331 (Version 1)
Quarter: 2013Q3

REPORT INFORMATION
  Report Type: Spontaneous
  Country: US (occurrence: None)
  Receive Date: 20130221
  Receipt Date: 20130221
  Transmission Date: 20140515
  Serious: Yes (Other)
  Sender: FDA-Public Use
  Company Number: None

PATIENT
  Age: 10 Year
  Sex: Male
  Weight: 31.8 kg

DRUGS (2)
  1. LAMOTRIGINE ER [Suspect]
     Indication: CONVULSION
     Dosage: Q AM
     Route: 048
     Dates: start: 20130127
  2. LAMOTRIGINE ER [Suspect]
     Indication: CONVULSION
     Dosage: Q AM
     Route: 048
     Dates: start: 20130127

REACTIONS (12)
  - Anger [None]
  - Frustration [None]
  - Insomnia [None]
  - Anxiety [None]
  - Screaming [None]
  - Incoherent [None]
  - Muscle spasms [None]
  - Musculoskeletal stiffness [None]
  - Headache [None]
  - Pain [None]
  - Abdominal discomfort [None]
  - Fear [None]
